FAERS Safety Report 7949297-1 (Version None)
Quarter: 2011Q4

REPORT INFORMATION
  Report Type: 
  Country: None (occurrence: None)
  Receive Date: 20111130
  Receipt Date: 20111118
  Transmission Date: 20120403
  Serious: Yes (Death)
  Sender: FDA-Public Use
  Company Number: IT-GILEAD-2011-0047178

PATIENT
  Age: 75 Year
  Sex: Male

DRUGS (6)
  1. AMIODARONE HCL [Concomitant]
     Indication: ARRHYTHMIA
     Dosage: 150 MG, UNK
     Route: 048
  2. TAMSULOSINE HCL A [Concomitant]
     Indication: BENIGN PROSTATIC HYPERPLASIA
     Dosage: 0.4 MG, UNK
     Route: 048
  3. RANOLAZINE [Suspect]
     Indication: ANGINA PECTORIS
     Dosage: 275 MG, UNK
     Route: 048
     Dates: start: 20110605
  4. ENALAPRIL MALEATE [Concomitant]
     Indication: HYPERTENSION
     Dosage: 10 MG, UNK
     Route: 048
  5. FUROSEMIDE [Concomitant]
     Indication: HYPERTENSION
     Dosage: 40 MG, UNK
     Route: 048
  6. NITRODERM [Concomitant]
     Indication: ANGINA PECTORIS
     Dosage: 75 MG, UNK
     Route: 062

REACTIONS (4)
  - HYPOTENSION [None]
  - SUDDEN DEATH [None]
  - ASTHENIA [None]
  - BRADYCARDIA [None]
